FAERS Safety Report 17705497 (Version 2)
Quarter: 2020Q2

REPORT INFORMATION
  Report Type: Spontaneous
  Country: AR (occurrence: AR)
  Receive Date: 20200424
  Receipt Date: 20200427
  Transmission Date: 20200714
  Serious: Yes (Hospitalization)
  Sender: FDA-Public Use
  Company Number: AR-MYLANLABS-2020M1037576

PATIENT
  Age: 68 Year
  Sex: Female

DRUGS (3)
  1. LAPENAX [Suspect]
     Active Substance: CLOZAPINE
     Dosage: 150 MILLIGRAM, QD
     Dates: start: 20200414
  2. LAPENAX [Suspect]
     Active Substance: CLOZAPINE
     Indication: PRODUCT USED FOR UNKNOWN INDICATION
     Dosage: UNK
     Dates: start: 20080530, end: 202003
  3. LAPENAX [Suspect]
     Active Substance: CLOZAPINE
     Dosage: 250 MILLIGRAM

REACTIONS (6)
  - Dengue fever [Recovered/Resolved]
  - Psychiatric decompensation [Unknown]
  - Monocyte count increased [Unknown]
  - Urinary tract infection [Unknown]
  - Red blood cell count decreased [Unknown]
  - Haemoglobin decreased [Unknown]

NARRATIVE: CASE EVENT DATE: 202003
